FAERS Safety Report 8942264 (Version 1)
Quarter: 2012Q4

REPORT INFORMATION
  Report Type: Spontaneous
  Country: US (occurrence: None)
  Receive Date: 20121129
  Receipt Date: 20121129
  Transmission Date: 20130627
  Serious: Yes (Life-Threatening, Hospitalization)
  Sender: FDA-Public Use
  Company Number: None

PATIENT
  Age: 61 Year
  Sex: Male
  Weight: 130.3 kg

DRUGS (2)
  1. LISINOPRIL [Suspect]
     Indication: HYPERTENSION
     Dosage: 40 MG   EVERY DAY   PO
     Route: 048
     Dates: start: 20100107, end: 20121101
  2. IBUPROFEN [Suspect]
     Indication: PAIN
     Dosage: 800 MG   PRN   PO
     Route: 048
     Dates: start: 20121031, end: 20121031

REACTIONS (3)
  - Anaphylactic reaction [None]
  - Angioedema [None]
  - Hypotension [None]
